FAERS Safety Report 10109000 (Version 1)
Quarter: 2014Q2

REPORT INFORMATION
  Report Type: Spontaneous
  Country: CA (occurrence: CA)
  Receive Date: 20140425
  Receipt Date: 20140425
  Transmission Date: 20141212
  Serious: Yes (Other)
  Sender: FDA-Public Use
  Company Number: CA-ROCHE-1389744

PATIENT
  Age: 61 Year
  Sex: Male
  Weight: 72 kg

DRUGS (2)
  1. TAMIFLU [Suspect]
     Indication: PRODUCT USED FOR UNKNOWN INDICATION
     Dosage: THERAPY DURATION:  4.0 DAYS
     Route: 048
  2. COUMADIN [Concomitant]
     Route: 065

REACTIONS (1)
  - International normalised ratio increased [Recovered/Resolved]
